FAERS Safety Report 6773647-5 (Version None)
Quarter: 2010Q2

REPORT INFORMATION
  Report Type: 
  Country: None (occurrence: None)
  Receive Date: 20100614
  Receipt Date: 20100528
  Transmission Date: 20101027
  Serious: Yes (Hospitalization)
  Sender: FDA-Public Use
  Company Number: CZ-1182067

PATIENT
  Age: 82 Year
  Sex: Female

DRUGS (6)
  1. FLUORESCITE [Suspect]
     Dosage: INTRAOCULAR
     Route: 031
  2. RAMIPRIL [Concomitant]
  3. VENELBIN (VENELBIN) [Concomitant]
  4. GODASAL (GODASAL) [Concomitant]
  5. HYDROCHLOROTHIAZIDE [Concomitant]
  6. METFORMIN HYDROCHLORIDE [Concomitant]

REACTIONS (4)
  - ERYTHEMA [None]
  - HYPOTENSION [None]
  - HYPOVENTILATION [None]
  - SYNCOPE [None]
